FAERS Safety Report 22599146 (Version 1)
Quarter: 2023Q2

REPORT INFORMATION
  Report Type: Spontaneous
  Country: US (occurrence: None)
  Receive Date: 20230613
  Receipt Date: 20230613
  Transmission Date: 20230721
  Serious: Yes (Death)
  Sender: FDA-Public Use
  Company Number: None

PATIENT
  Age: 61 Year
  Sex: Male
  Weight: 77.5 kg

DRUGS (1)
  1. KYMRIAH [Suspect]
     Active Substance: TISAGENLECLEUCEL
     Indication: Diffuse large B-cell lymphoma
     Dates: start: 20210216, end: 20210216

REACTIONS (4)
  - Lymphocyte adoptive therapy [None]
  - Diffuse large B-cell lymphoma [None]
  - Non-Hodgkin^s lymphoma [None]
  - Autologous haematopoietic stem cell transplant [None]

NARRATIVE: CASE EVENT DATE: 20230512
